FAERS Safety Report 8608841-1 (Version None)
Quarter: 2012Q3

REPORT INFORMATION
  Report Type: 
  Country: None (occurrence: None)
  Receive Date: 20120821
  Receipt Date: 20120808
  Transmission Date: 20120928
  Serious: No
  Sender: FDA-Public Use
  Company Number: US-ASTRAZENECA-2012SE56188

PATIENT
  Age: 55 Year
  Sex: Male

DRUGS (1)
  1. ZOMIG [Suspect]
     Indication: MIGRAINE
     Dosage: 5 MG, EVERY DAY, AS NEEDED
     Route: 048

REACTIONS (4)
  - ADVERSE EVENT [None]
  - MIGRAINE [None]
  - EYE PAIN [None]
  - HEADACHE [None]
